FAERS Safety Report 15207925 (Version 1)
Quarter: 2018Q3

REPORT INFORMATION
  Report Type: Report from Study
  Country: US (occurrence: US)
  Receive Date: 20180727
  Receipt Date: 20180727
  Transmission Date: 20181010
  Serious: Yes (Other)
  Sender: FDA-Public Use
  Company Number: PHEH2018US030028

PATIENT
  Sex: Female

DRUGS (1)
  1. AFINITOR [Suspect]
     Active Substance: EVEROLIMUS
     Indication: PRODUCT USED FOR UNKNOWN INDICATION
     Route: 065

REACTIONS (7)
  - Spinal cord injury [Unknown]
  - Anaemia [Unknown]
  - Weight abnormal [Unknown]
  - Metastases to spine [Unknown]
  - Diabetes mellitus [Unknown]
  - Malaise [Unknown]
  - Metastases to kidney [Unknown]
